FAERS Safety Report 5614337-1 (Version None)
Quarter: 2008Q1

REPORT INFORMATION
  Report Type: 
  Country: None (occurrence: None)
  Receive Date: 20080205
  Receipt Date: 20080124
  Transmission Date: 20080703
  Serious: Yes (Other)
  Sender: FDA-Public Use
  Company Number: US-PFIZER INC-2008007687

PATIENT
  Age: 21 Year
  Sex: Female

DRUGS (6)
  1. MARAVIROC [Suspect]
     Indication: HIV INFECTION
  2. NORVIR [Concomitant]
  3. RALTEGRAVIR [Concomitant]
  4. TMC114 [Concomitant]
  5. TRIZIVIR [Concomitant]
  6. TENOFOVIR DISOPROXIL FUMARATE [Concomitant]

REACTIONS (1)
  - LIPODYSTROPHY ACQUIRED [None]
